FAERS Safety Report 12330547 (Version 1)
Quarter: 2016Q2

REPORT INFORMATION
  Report Type: Spontaneous
  Country: US (occurrence: None)
  Receive Date: 20160503
  Receipt Date: 20160503
  Transmission Date: 20160815
  Serious: No
  Sender: FDA-Public Use
  Company Number: None

PATIENT
  Age: 63 Year
  Sex: Male

DRUGS (6)
  1. RAPAFLO [Concomitant]
     Active Substance: SILODOSIN
  2. PEG [Concomitant]
     Active Substance: POLYETHYLENE GLYCOLS
  3. PREDNISONE. [Concomitant]
     Active Substance: PREDNISONE
  4. DUTASTERIDE. [Concomitant]
     Active Substance: DUTASTERIDE
  5. CICLOPIROX. [Concomitant]
     Active Substance: CICLOPIROX
  6. ZYTIGA [Suspect]
     Active Substance: ABIRATERONE ACETATE
     Indication: PROSTATE CANCER
     Route: 048
     Dates: start: 20150910, end: 20160502

REACTIONS (2)
  - Drug ineffective [None]
  - Disease progression [None]

NARRATIVE: CASE EVENT DATE: 20160502
